FAERS Safety Report 25084317 (Version 1)
Quarter: 2025Q1

REPORT INFORMATION
  Report Type: Report from Study
  Country: US (occurrence: US)
  Receive Date: 20250317
  Receipt Date: 20250317
  Transmission Date: 20250409
  Serious: Yes (Hospitalization)
  Sender: INSMED
  Company Number: US-INSMED, INC.-2024-03765-US

PATIENT
  Sex: Male

DRUGS (2)
  1. ARIKAYCE [Suspect]
     Active Substance: AMIKACIN
     Indication: Mycobacterial infection
     Dosage: 590 MILLIGRAM, QD
     Route: 055
     Dates: start: 20240826, end: 2024
  2. TOBRAMYCIN [Concomitant]
     Active Substance: TOBRAMYCIN
     Indication: Product used for unknown indication
     Route: 065

REACTIONS (4)
  - Hospitalisation [Unknown]
  - Malaise [Not Recovered/Not Resolved]
  - Off label use [Unknown]
  - Therapy interrupted [Unknown]
